FAERS Safety Report 10573280 (Version 7)
Quarter: 2015Q1

REPORT INFORMATION
  Report Type: Report from Study
  Country: CA (occurrence: CA)
  Receive Date: 20141110
  Receipt Date: 20150225
  Transmission Date: 20150720
  Serious: Yes (Other)
  Sender: FDA-Public Use
  Company Number: CA-BAYER-2014-069439

PATIENT
  Age: 78 Year
  Sex: Female

DRUGS (9)
  1. ADEMPAS [Suspect]
     Active Substance: RIOCIGUAT
     Indication: PULMONARY HYPERTENSION
     Dosage: 1 MG, TID
     Route: 048
     Dates: start: 20140403
  2. ASA [Concomitant]
     Active Substance: ASPIRIN
     Dosage: 81 MG, UNK
  3. ADEMPAS [Suspect]
     Active Substance: RIOCIGUAT
     Indication: PULMONARY HYPERTENSION
     Dosage: 1.5 MG, TID
  4. CENTRUM SELECT [Concomitant]
     Active Substance: VITAMINS
  5. SENOKOT-S [DOCUSATE SODIUM,SENNA ALEXANDRINA] [Concomitant]
  6. ADEMPAS [Suspect]
     Active Substance: RIOCIGUAT
     Indication: PULMONARY HYPERTENSION
     Dosage: 0.5 MG, TID
     Route: 048
     Dates: start: 20140403
  7. ESOMEPRAZOLE [Concomitant]
     Active Substance: ESOMEPRAZOLE
  8. LASIX [Concomitant]
     Active Substance: FUROSEMIDE
  9. HYDROXYUREA. [Concomitant]
     Active Substance: HYDROXYUREA

REACTIONS (27)
  - Hypotension [Not Recovered/Not Resolved]
  - Bronchitis [Unknown]
  - Dizziness postural [Not Recovered/Not Resolved]
  - Oropharyngeal pain [Unknown]
  - Breath sounds abnormal [Unknown]
  - Malaise [None]
  - Blood pressure decreased [None]
  - Dizziness [Not Recovered/Not Resolved]
  - Hypotension [Unknown]
  - Dizziness postural [None]
  - Hypotension [None]
  - Productive cough [Recovering/Resolving]
  - Diarrhoea [None]
  - Hypotension [None]
  - Productive cough [Unknown]
  - Abdominal pain [None]
  - Dizziness postural [Recovered/Resolved]
  - Dizziness [Unknown]
  - Dizziness [None]
  - Hypotension [None]
  - Diastolic hypotension [Unknown]
  - Dry mouth [Not Recovered/Not Resolved]
  - Somnolence [None]
  - Malaise [Unknown]
  - Headache [Unknown]
  - Asthenia [None]
  - Asthenia [None]

NARRATIVE: CASE EVENT DATE: 20140505
